FAERS Safety Report 7552291-6 (Version None)
Quarter: 2011Q2

REPORT INFORMATION
  Report Type: 
  Country: None (occurrence: None)
  Receive Date: 20110616
  Receipt Date: 20050323
  Transmission Date: 20111010
  Serious: Yes (Hospitalization)
  Sender: FDA-Public Use
  Company Number: PHHO2005JP05020

PATIENT
  Sex: Female
  Weight: 66 kg

DRUGS (8)
  1. GLYBURIDE [Concomitant]
     Dosage: UNKNOWN
  2. CARVEDILOL [Concomitant]
     Dosage: UNKNOWN
  3. ACTOS [Concomitant]
     Dosage: UNKNOWN
  4. HUMACART-N [Concomitant]
     Dosage: UNKNOWN
  5. PURSENNID /SCH/ [Concomitant]
     Indication: CONSTIPATION
     Dosage: UNKNOWN
  6. BUFFERIN [Concomitant]
     Dosage: UNKNOWN
  7. DIOVAN [Suspect]
     Dosage: 80 MG, QD
     Route: 048
     Dates: start: 20030807
  8. NORVASC [Concomitant]
     Dosage: UNKNOWN

REACTIONS (1)
  - DIABETES MELLITUS [None]
